FAERS Safety Report 8416266-7 (Version None)
Quarter: 2012Q2

REPORT INFORMATION
  Report Type: 
  Country: None (occurrence: None)
  Receive Date: 20120606
  Receipt Date: 20120524
  Transmission Date: 20120825
  Serious: Yes (Hospitalization)
  Sender: FDA-Public Use
  Company Number: BE-ELI_LILLY_AND_COMPANY-BE201205009251

PATIENT
  Age: 67 Year
  Sex: Male

DRUGS (2)
  1. ZOLPIDEM [Concomitant]
     Dosage: UNK, EACH EVENING
     Route: 065
  2. CYMBALTA [Suspect]
     Indication: DEPRESSION
     Dosage: UNK UNK, UNKNOWN
     Route: 065
     Dates: start: 20120401

REACTIONS (2)
  - SURGERY [None]
  - URINARY RETENTION [None]
